FAERS Safety Report 19189294 (Version 2)
Quarter: 2021Q3

REPORT INFORMATION
  Report Type: Spontaneous
  Country: US (occurrence: US)
  Receive Date: 20210428
  Receipt Date: 20210823
  Transmission Date: 20211014
  Serious: No
  Sender: FDA-Public Use
  Company Number: US-AKCEA THERAPEUTICS, INC.-2021IS001057

PATIENT
  Age: 70 Year
  Sex: Male
  Weight: 68.14 kg

DRUGS (7)
  1. POTASSIUM [Concomitant]
     Active Substance: POTASSIUM
     Route: 065
  2. ISSD (INTEGRATED SYRINGE SAFETY DEVICE) [Suspect]
     Active Substance: DEVICE
  3. LEVOTHYROXINE. [Concomitant]
     Active Substance: LEVOTHYROXINE
     Route: 065
  4. TEGSEDI [Suspect]
     Active Substance: INOTERSEN SODIUM
     Indication: HEREDITARY NEUROPATHIC AMYLOIDOSIS
     Route: 058
     Dates: start: 2013
  5. HYDROCHLOROTHIAZIDE. [Concomitant]
     Active Substance: HYDROCHLOROTHIAZIDE
     Route: 065
  6. MULTIVITAMINS /00116001/ [Concomitant]
     Active Substance: VITAMINS
     Route: 065
  7. IRON [Concomitant]
     Active Substance: IRON
     Route: 065

REACTIONS (8)
  - Injection site reaction [Recovered/Resolved]
  - Muscle spasms [Unknown]
  - Unevaluable event [Recovered/Resolved]
  - Tremor [Unknown]
  - Sleep disorder [Recovered/Resolved]
  - Cystitis [Unknown]
  - Chills [Unknown]
  - Diarrhoea [Unknown]
